FAERS Safety Report 13595031 (Version 1)
Quarter: 2017Q2

REPORT INFORMATION
  Report Type: Spontaneous
  Country: SE (occurrence: SE)
  Receive Date: 20170531
  Receipt Date: 20170531
  Transmission Date: 20170830
  Serious: Yes (Other)
  Sender: FDA-Public Use
  Company Number: PHHY2017SE078479

PATIENT
  Sex: Female

DRUGS (1)
  1. VOLTAREN [Suspect]
     Active Substance: DICLOFENAC SODIUM
     Indication: CHOLELITHIASIS
     Dosage: UNK
     Route: 065
     Dates: start: 1998, end: 1998

REACTIONS (4)
  - Rectal cancer [Unknown]
  - Sedation [Unknown]
  - Product use in unapproved indication [Unknown]
  - Abdominal hernia [Unknown]

NARRATIVE: CASE EVENT DATE: 2007
